FAERS Safety Report 12037490 (Version 1)
Quarter: 2016Q1

REPORT INFORMATION
  Report Type: Spontaneous
  Country: GB (occurrence: GB)
  Receive Date: 20160208
  Receipt Date: 20160208
  Transmission Date: 20160526
  Serious: Yes (Disabling)
  Sender: FDA-Public Use
  Company Number: GB-DRREDDYS-GER/UKI/16/0068239

PATIENT
  Age: 41 Year
  Sex: Male
  Weight: 73 kg

DRUGS (1)
  1. OMEPRAZOLE. [Suspect]
     Active Substance: OMEPRAZOLE
     Indication: DYSPEPSIA
     Route: 048
     Dates: start: 20151201, end: 20160110

REACTIONS (9)
  - Paranoia [Recovering/Resolving]
  - Impulsive behaviour [Recovering/Resolving]
  - Abnormal behaviour [Recovering/Resolving]
  - Anxiety [Recovering/Resolving]
  - Panic reaction [Recovering/Resolving]
  - Obsessive thoughts [Recovering/Resolving]
  - Insomnia [Recovering/Resolving]
  - Dizziness [Recovering/Resolving]
  - Suicidal ideation [Unknown]

NARRATIVE: CASE EVENT DATE: 20151208
